FAERS Safety Report 9202657 (Version 1)
Quarter: 2013Q2

REPORT INFORMATION
  Report Type: Report from Study
  Country: CZ (occurrence: CZ)
  Receive Date: 20130401
  Receipt Date: 20130401
  Transmission Date: 20140414
  Serious: Yes (Other)
  Sender: FDA-Public Use
  Company Number: CZ-ABBOTT-13P-217-1071091-00

PATIENT
  Age: 42 Year
  Sex: Female

DRUGS (1)
  1. HUMIRA [Suspect]
     Indication: PRODUCT USED FOR UNKNOWN INDICATION
     Dosage: INTERRUPTED FOR TWO WEEKS
     Route: 058
     Dates: end: 20130204

REACTIONS (2)
  - Epicondylitis [Recovered/Resolved]
  - Inflammation of wound [Recovered/Resolved]
